FAERS Safety Report 8491099-4 (Version None)
Quarter: 2012Q2

REPORT INFORMATION
  Report Type: 
  Country: None (occurrence: None)
  Receive Date: 20120402
  Receipt Date: 20120116
  Transmission Date: 20120825
  Serious: Yes (Hospitalization)
  Sender: FDA-Public Use
  Company Number: 312521USA

PATIENT
  Age: 63 Year
  Sex: Female

DRUGS (10)
  1. LEUCOVORIN CALCIUM [Suspect]
     Indication: HEPATIC NEOPLASM MALIGNANT
     Dosage: (40 MG),INTRAVENOUS (NOT OTHERWISE SPECIFIED)
     Route: 042
     Dates: start: 20111108
  2. PEGFILGRASTIM [Concomitant]
  3. IRINOTECAN HCL [Suspect]
     Indication: HEPATIC NEOPLASM MALIGNANT
     Dosage: (360 MG),INTRAVENOUS (NOT OTHERWISE SPECIFIED)
     Route: 042
     Dates: start: 20111108
  4. FLUOROURACIL [Suspect]
     Indication: HEPATIC NEOPLASM MALIGNANT
     Dosage: (1000 MG),INTRAVENOUS (NOT OTHERWISE SPECIFIED)
     Route: 042
     Dates: start: 20111108
  5. DEXAMETHASONE [Concomitant]
  6. GRANISETRON [Concomitant]
  7. LOPERAMIDE [Concomitant]
  8. PROCHLORPERAZINE EDISYLATE [Concomitant]
  9. FENTANYL [Concomitant]
  10. TRIMETHOBENZAMIDE HYDROCHLORIDE [Concomitant]

REACTIONS (1)
  - PANCYTOPENIA [None]
